FAERS Safety Report 18139670 (Version 1)
Quarter: 2020Q3

REPORT INFORMATION
  Report Type: Spontaneous
  Country: TR (occurrence: TR)
  Receive Date: 20200812
  Receipt Date: 20200812
  Transmission Date: 20201103
  Serious: No
  Sender: FDA-Public Use
  Company Number: TR-TOLMAR, INC.-20TR022277

PATIENT
  Sex: Male

DRUGS (1)
  1. ELIGARD [Suspect]
     Active Substance: LEUPROLIDE ACETATE
     Indication: PRODUCT USED FOR UNKNOWN INDICATION
     Dosage: 45 MG, UNKNOWN FREQUENCY
     Route: 058
     Dates: start: 201912

REACTIONS (5)
  - Product administration error [None]
  - Syringe issue [None]
  - Device leakage [None]
  - Underdose [None]
  - Needle issue [None]

NARRATIVE: CASE EVENT DATE: 201912
